FAERS Safety Report 15236748 (Version 1)
Quarter: 2018Q3

REPORT INFORMATION
  Report Type: Report from Study
  Country: US (occurrence: US)
  Receive Date: 20180803
  Receipt Date: 20180803
  Transmission Date: 20181010
  Serious: Yes (Other)
  Sender: FDA-Public Use
  Company Number: US-ROCHE-2161936

PATIENT

DRUGS (4)
  1. CARBOPLATIN. [Suspect]
     Active Substance: CARBOPLATIN
     Indication: HER-2 POSITIVE BREAST CANCER
     Dosage: TARGET AREA UNDER THE CURVE: 6 }/= 15 MINUTES
     Route: 042
  2. TRASTUZUMAB. [Suspect]
     Active Substance: TRASTUZUMAB
     Dosage: OVER 30?MINUTES TO 90 MINUTES OVER SUBSEQUENT CYCLES
     Route: 042
  3. TRASTUZUMAB. [Suspect]
     Active Substance: TRASTUZUMAB
     Indication: HER-2 POSITIVE BREAST CANCER
     Dosage: OVER 90?MINUTES ON DAY 1 OF CYCLE 1
     Route: 042
  4. DOCETAXEL. [Suspect]
     Active Substance: DOCETAXEL
     Indication: HER-2 POSITIVE BREAST CANCER
     Dosage: 60?MIN
     Route: 042

REACTIONS (8)
  - Dehydration [Unknown]
  - Gastrointestinal infection [Unknown]
  - Anaemia [Unknown]
  - Tooth infection [Unknown]
  - Febrile neutropenia [Unknown]
  - Hip fracture [Unknown]
  - Neutropenia [Unknown]
  - Hypokalaemia [Unknown]
